FAERS Safety Report 17757417 (Version 3)
Quarter: 2020Q2

REPORT INFORMATION
  Report Type: Spontaneous
  Country: CN (occurrence: CN)
  Receive Date: 20200507
  Receipt Date: 20200511
  Transmission Date: 20200714
  Serious: Yes (Other)
  Sender: FDA-Public Use
  Company Number: CN-009507513-2004CHN009281

PATIENT
  Age: 63 Year
  Sex: Female

DRUGS (3)
  1. DIPROSPAN [Suspect]
     Active Substance: BETAMETHASONE DIPROPIONATE\BETAMETHASONE SODIUM PHOSPHATE
     Indication: PYODERMA GANGRENOSUM
     Dosage: UNK
  2. MINOCYCLINE [Concomitant]
     Active Substance: MINOCYCLINE HYDROCHLORIDE
     Indication: PYODERMA GANGRENOSUM
  3. PREDNISONE. [Suspect]
     Active Substance: PREDNISONE
     Indication: PYODERMA GANGRENOSUM
     Dosage: UNK

REACTIONS (1)
  - Cutaneous sporotrichosis [Recovered/Resolved]
